FAERS Safety Report 4665318-6 (Version None)
Quarter: 2005Q2

REPORT INFORMATION
  Report Type: 
  Country: None (occurrence: None)
  Receive Date: 20050517
  Receipt Date: 20050505
  Transmission Date: 20051028
  Serious: Yes (Other)
  Sender: FDA-Public Use
  Company Number: 2005072267

PATIENT
  Age: 48 Year
  Sex: Female

DRUGS (4)
  1. CELEBREX [Suspect]
     Indication: ARTHRITIS
     Dosage: ORAL
     Route: 048
  2. PRINZIDE [Concomitant]
  3. PROPRANOLOL [Concomitant]
  4. VENLAFAXINE HCL [Concomitant]

REACTIONS (2)
  - DRUG EFFECT DECREASED [None]
  - RADICAL HYSTERECTOMY [None]
